FAERS Safety Report 5332274-7 (Version None)
Quarter: 2007Q2

REPORT INFORMATION
  Report Type: 
  Country: None (occurrence: None)
  Receive Date: 20070521
  Receipt Date: 20070521
  Transmission Date: 20071010
  Serious: Yes (Other)
  Sender: FDA-Public Use
  Company Number: None

PATIENT
  Age: 56 Year
  Sex: Female
  Weight: 200 kg

DRUGS (2)
  1. OXYCODONE HCL EXTENDED-RELEASE [Suspect]
     Indication: CANCER PAIN
     Dosage: 80MG TABLET TID PO
     Route: 048
     Dates: start: 20070101, end: 20070401
  2. OXYCODONE HCL EXTENDED-RELEASE [Suspect]
     Indication: LUNG CARCINOMA CELL TYPE UNSPECIFIED STAGE IV
     Dosage: 80MG TABLET TID PO
     Route: 048
     Dates: start: 20070101, end: 20070401

REACTIONS (2)
  - DRUG EFFECT DECREASED [None]
  - THERAPEUTIC RESPONSE UNEXPECTED WITH DRUG SUBSTITUTION [None]
